FAERS Safety Report 9102973 (Version 1)
Quarter: 2013Q1

REPORT INFORMATION
  Report Type: Spontaneous
  Country: DE (occurrence: DE)
  Receive Date: 20130219
  Receipt Date: 20130219
  Transmission Date: 20140127
  Serious: Yes (Other)
  Sender: FDA-Public Use
  Company Number: DE-PFIZER INC-2013060763

PATIENT
  Age: 46 Year
  Sex: Female

DRUGS (1)
  1. CYKLOKAPRON [Suspect]
     Indication: HAEMORRHAGE
     Dosage: 500 MG, UNK

REACTIONS (3)
  - VIth nerve paralysis [Unknown]
  - Visual impairment [Unknown]
  - Muscle tightness [Unknown]
